FAERS Safety Report 7293134-8 (Version None)
Quarter: 2011Q1

REPORT INFORMATION
  Report Type: 
  Country: None (occurrence: None)
  Receive Date: 20110215
  Receipt Date: 20110131
  Transmission Date: 20110831
  Serious: Yes (Other)
  Sender: FDA-Public Use
  Company Number: US-ROCHE-759105

PATIENT
  Sex: Female

DRUGS (6)
  1. PREDNISONE [Concomitant]
     Route: 048
  2. MAGNESIUM [Concomitant]
     Indication: HYPERTENSION
     Route: 048
  3. TACROLIMUS [Concomitant]
     Route: 048
     Dates: start: 20080901
  4. METOPROLOL [Concomitant]
     Indication: HYPERTENSION
     Route: 048
  5. MYCOPHENOLATE MOFETIL [Suspect]
     Route: 048
     Dates: start: 20080901, end: 20101108
  6. PREDNISONE [Concomitant]
     Route: 048

REACTIONS (1)
  - ABORTION SPONTANEOUS [None]
